FAERS Safety Report 19911970 (Version 1)
Quarter: 2021Q4

REPORT INFORMATION
  Report Type: Spontaneous
  Country: US (occurrence: US)
  Receive Date: 20211002
  Receipt Date: 20211002
  Transmission Date: 20220303
  Serious: Yes (Hospitalization)
  Sender: FDA-Public Use
  Company Number: None

PATIENT
  Age: 78 Year
  Sex: Female
  Weight: 62.5 kg

DRUGS (2)
  1. CARBOPLATIN [Suspect]
     Active Substance: CARBOPLATIN
     Dates: end: 20210916
  2. TAXOL [Suspect]
     Active Substance: PACLITAXEL
     Dates: end: 20210916

REACTIONS (9)
  - Asthenia [None]
  - Fatigue [None]
  - Dyspnoea [None]
  - Febrile neutropenia [None]
  - Anaemia [None]
  - Lymphocyte count decreased [None]
  - White blood cell count decreased [None]
  - Stoma complication [None]
  - Pain [None]

NARRATIVE: CASE EVENT DATE: 20210925
